FAERS Safety Report 4445005-X (Version None)
Quarter: 2004Q3

REPORT INFORMATION
  Report Type: 
  Country: None (occurrence: None)
  Receive Date: 20040907
  Receipt Date: 20040831
  Transmission Date: 20050211
  Serious: Yes (Life-Threatening)
  Sender: FDA-Public Use
  Company Number: 2004AP04368

PATIENT
  Age: 70 Year
  Sex: Male
  Weight: 70 kg

DRUGS (5)
  1. NAROPIN [Suspect]
     Indication: ANAESTHESIA
     Dosage: 225 MG DAILY IV
     Route: 042
  2. NAROPIN [Suspect]
     Indication: NERVE BLOCK
     Dosage: 225 MG DAILY IV
     Route: 042
  3. NAROPIN [Suspect]
     Indication: SHOULDER OPERATION
     Dosage: 225 MG DAILY IV
     Route: 042
  4. MIDAZOLAM [Concomitant]
  5. FENTANYL [Concomitant]

REACTIONS (5)
  - CARDIAC ARREST [None]
  - DRUG TOXICITY [None]
  - GRAND MAL CONVULSION [None]
  - MALAISE [None]
  - VENTRICULAR ARRHYTHMIA [None]
